FAERS Safety Report 4492589-1 (Version None)
Quarter: 2004Q4

REPORT INFORMATION
  Report Type: 
  Country: None (occurrence: None)
  Receive Date: 20041029
  Receipt Date: 20041019
  Transmission Date: 20050328
  Serious: No
  Sender: FDA-Public Use
  Company Number: 2004UW13004

PATIENT
  Age: 78 Year
  Sex: Female
  Weight: 90.7194 kg

DRUGS (4)
  1. SEROQUEL [Suspect]
     Dosage: 300 MG
  2. SEROQUEL [Suspect]
     Dosage: 200 MG
  3. SEROQUEL [Suspect]
     Dosage: 150 MG
  4. PROZAC [Concomitant]

REACTIONS (3)
  - ASTHENIA [None]
  - GRIP STRENGTH DECREASED [None]
  - LOSS OF CONTROL OF LEGS [None]
